FAERS Safety Report 6360632-0 (Version None)
Quarter: 2009Q3

REPORT INFORMATION
  Report Type: 
  Country: None (occurrence: None)
  Receive Date: 20090915
  Receipt Date: 20090831
  Transmission Date: 20100115
  Serious: Yes (Death)
  Sender: FDA-Public Use
  Company Number: 087

PATIENT
  Sex: Female

DRUGS (3)
  1. FAZACLO ODT [Suspect]
     Indication: PSYCHOTIC DISORDER
     Dosage: 350 MG PO DAILY
     Route: 048
     Dates: start: 20061012, end: 20061025
  2. ATIVAN [Concomitant]
  3. EFFEXOR [Concomitant]

REACTIONS (2)
  - DISEASE PROGRESSION [None]
  - PARKINSON'S DISEASE [None]
